FAERS Safety Report 6883052-9 (Version None)
Quarter: 2010Q3

REPORT INFORMATION
  Report Type: 
  Country: None (occurrence: None)
  Receive Date: 20100729
  Receipt Date: 20100719
  Transmission Date: 20110219
  Serious: Yes (Hospitalization)
  Sender: FDA-Public Use
  Company Number: US-ROCHE-712727

PATIENT
  Sex: Male
  Weight: 116.1 kg

DRUGS (12)
  1. BEVACIZUMAB [Suspect]
     Indication: MENINGIOMA
     Dosage: LAST ADMINISTERED DOSE: 23 JUNE 2010, PERMANENTLY DISCONTINUED
     Route: 042
     Dates: start: 20100430
  2. EVEROLIMUS [Suspect]
     Indication: MENINGIOMA
     Dosage: PERMANENTLY DISCONTINUED
     Route: 048
     Dates: start: 20100430
  3. DECADRON [Concomitant]
     Dates: start: 20090501
  4. PEPCID [Concomitant]
     Indication: PROPHYLAXIS
     Dates: start: 20090501
  5. LASIX [Concomitant]
     Dates: start: 20100528
  6. POTASSIUM CHLORIDE [Concomitant]
     Dosage: DOSE: 1/1
     Dates: start: 20090501
  7. KEPPRA [Concomitant]
     Dates: start: 20030101
  8. LAMICTAL [Concomitant]
     Dates: start: 20030101
  9. VASOTEC [Concomitant]
     Indication: HYPERTENSION
     Dates: start: 19890101
  10. HYDROCHLOROTHIAZIDE [Concomitant]
     Dates: start: 19890101
  11. FLOMAX [Concomitant]
     Dates: start: 20090501
  12. PRAVASTATIN [Concomitant]
     Dates: start: 20000101

REACTIONS (5)
  - DYSPHAGIA [None]
  - MENTAL STATUS CHANGES [None]
  - NAUSEA [None]
  - PNEUMONIA [None]
  - VOMITING [None]
